FAERS Safety Report 9175940 (Version 3)
Quarter: 2013Q4

REPORT INFORMATION
  Report Type: Spontaneous
  Country: US (occurrence: US)
  Receive Date: 20130320
  Receipt Date: 20131224
  Transmission Date: 20140711
  Serious: Yes (Hospitalization, Other)
  Sender: FDA-Public Use
  Company Number: US-009507513-1303USA008134

PATIENT
  Sex: Female
  Weight: 65.31 kg

DRUGS (4)
  1. FOSAMAX [Suspect]
     Indication: OSTEOPOROSIS
     Dosage: 10 MG, QD
     Route: 048
     Dates: start: 199510, end: 200706
  2. VITAMINS (UNSPECIFIED) [Concomitant]
     Dosage: UNK
     Dates: start: 1995
  3. CALCIUM (UNSPECIFIED) (+) VITAMIN D (UNSPECIFIED) [Concomitant]
     Indication: OSTEOPOROSIS
     Dosage: 1500 - 1800 MG QD
     Dates: start: 1995
  4. CALCITONIN [Concomitant]
     Dosage: UNK, QD
     Dates: start: 1995

REACTIONS (13)
  - Intramedullary rod insertion [Unknown]
  - Pulmonary embolism [Unknown]
  - Femur fracture [Unknown]
  - Arthritis [Unknown]
  - Anxiety [Unknown]
  - Depression [Unknown]
  - Restless legs syndrome [Unknown]
  - Upper limb fracture [Unknown]
  - Road traffic accident [Unknown]
  - Hypertension [Unknown]
  - Osteopenia [Unknown]
  - Neurological symptom [Unknown]
  - Spinal osteoarthritis [Unknown]
